FAERS Safety Report 7652915-9 (Version None)
Quarter: 2011Q3

REPORT INFORMATION
  Report Type: 
  Country: None (occurrence: None)
  Receive Date: 20110722
  Receipt Date: 20101013
  Transmission Date: 20111222
  Serious: Yes (Hospitalization)
  Sender: FDA-Public Use
  Company Number: UTC-001568

PATIENT
  Age: 34 Year
  Sex: Female
  Weight: 145 kg

DRUGS (3)
  1. REVATIO [Concomitant]
  2. LETAIRIS [Concomitant]
  3. REMODULIN [Suspect]
     Indication: PULMONARY ARTERIAL HYPERTENSION
     Dosage: 38.88 UG/KG (0.027 UG/KG, 1 IN 1 MIN), SUBCUTANEOUS
     Route: 058
     Dates: start: 20081108

REACTIONS (2)
  - OEDEMA [None]
  - DYSPNOEA [None]
